FAERS Safety Report 6105608-3 (Version None)
Quarter: 2009Q1

REPORT INFORMATION
  Report Type: 
  Country: None (occurrence: None)
  Receive Date: 20090304
  Receipt Date: 20090304
  Transmission Date: 20090719
  Serious: Yes (Death, Hospitalization)
  Sender: FDA-Public Use
  Company Number: None

PATIENT
  Sex: Female
  Weight: 49.1 kg

DRUGS (5)
  1. ERLOTINIB 150MG GENETECH [Suspect]
     Indication: NON-SMALL CELL LUNG CANCER
     Dosage: 150MG, ORALLY QD
     Route: 048
     Dates: start: 20090203, end: 20090222
  2. DASATINIB 140MG BRISTOL-MYERS SQUIBB [Suspect]
     Indication: NON-SMALL CELL LUNG CANCER
     Dosage: 140MG , ORALLY QD
     Route: 048
     Dates: start: 20090211, end: 20090222
  3. ALBUTEROL [Concomitant]
  4. SPIRIVA [Concomitant]
  5. METOPROLOL TARTRATE [Concomitant]

REACTIONS (7)
  - BRONCHIAL NEOPLASM [None]
  - BRONCHIAL OBSTRUCTION [None]
  - DISEASE PROGRESSION [None]
  - EJECTION FRACTION DECREASED [None]
  - MYOCARDIAL INFARCTION [None]
  - RESPIRATORY FAILURE [None]
  - UPPER RESPIRATORY TRACT INFECTION [None]
